FAERS Safety Report 21636428 (Version 5)
Quarter: 2024Q2

REPORT INFORMATION
  Report Type: Report from Study
  Country: US (occurrence: US)
  Receive Date: 20221124
  Receipt Date: 20240613
  Transmission Date: 20240716
  Serious: Yes (Other)
  Sender: FDA-Public Use
  Company Number: US-ABBVIE-4211531

PATIENT
  Age: 75 Year
  Sex: Female
  Weight: 104 kg

DRUGS (4)
  1. IMBRUVICA [Suspect]
     Active Substance: IBRUTINIB
     Indication: Chronic lymphocytic leukaemia
     Route: 048
     Dates: start: 20200301, end: 20220904
  2. IMBRUVICA [Suspect]
     Active Substance: IBRUTINIB
     Indication: Chronic lymphocytic leukaemia
     Route: 048
  3. GABAPENTIN [Suspect]
     Active Substance: GABAPENTIN
     Indication: Cerebral artery embolism
     Route: 065
  4. MELATONIN [Suspect]
     Active Substance: MELATONIN
     Indication: Cerebral artery embolism
     Route: 065

REACTIONS (9)
  - Cerebral thrombosis [Recovered/Resolved]
  - Nausea [Unknown]
  - Thrombosis [Recovered/Resolved]
  - Drug hypersensitivity [Recovered/Resolved]
  - Renal neoplasm [Recovered/Resolved]
  - Cerebral haemorrhage [Recovered/Resolved]
  - Renal impairment [Unknown]
  - Abnormal behaviour [Unknown]
  - Blood pressure abnormal [Unknown]

NARRATIVE: CASE EVENT DATE: 20221031
